FAERS Safety Report 5889916-7 (Version None)
Quarter: 2008Q3

REPORT INFORMATION
  Report Type: 
  Country: None (occurrence: None)
  Receive Date: 20080919
  Receipt Date: 20080912
  Transmission Date: 20090109
  Serious: Yes (Other)
  Sender: FDA-Public Use
  Company Number: PHEH2008US08206

PATIENT
  Sex: Male

DRUGS (2)
  1. TEKTURNA HCT [Suspect]
     Dosage: ALIS300/HCT25, UNK
  2. EXFORGE [Suspect]
     Dosage: AMLO5/VAL320, UNK

REACTIONS (2)
  - GOUT [None]
  - RENAL PAIN [None]
